FAERS Safety Report 4981013-8 (Version None)
Quarter: 2006Q2

REPORT INFORMATION
  Report Type: 
  Country: None (occurrence: None)
  Receive Date: 20060418
  Receipt Date: 20060330
  Transmission Date: 20061013
  Serious: Yes (Hospitalization, Other)
  Sender: FDA-Public Use
  Company Number: US_010668203

PATIENT
  Age: 68 Year
  Sex: Female
  Weight: 79.4 kg

DRUGS (6)
  1. HUMULIN N [Suspect]
     Indication: DIABETES MELLITUS
     Dosage: 15 U, EACH MORNING, SUBCUTANEOUS
     Route: 058
     Dates: start: 19970101
  2. HUMULIN N [Suspect]
  3. ILETIN (INSULIN, ANIMAL BEEF/PORK NPH) VIAL [Suspect]
     Indication: DIABETES MELLITUS
     Dosage: SUBCUTANEOUS
     Route: 058
     Dates: start: 19810101, end: 19870101
  4. STARLIX [Concomitant]
  5. HUMULIN NPH PEN (HUMULIN N PEN) PEN, DISPOSABLE [Concomitant]
  6. HUMULIN N PEN (HUMULIN N PEN) PEN, DISPOSABLE [Concomitant]

REACTIONS (26)
  - ASTHENIA [None]
  - BLINDNESS [None]
  - BLOOD GLUCOSE INCREASED [None]
  - CEREBROVASCULAR ACCIDENT [None]
  - CONDITION AGGRAVATED [None]
  - CORONARY ARTERY OCCLUSION [None]
  - COUGH [None]
  - DIABETES MELLITUS INADEQUATE CONTROL [None]
  - DIFFICULTY IN WALKING [None]
  - DISORIENTATION [None]
  - DYSSTASIA [None]
  - FALL [None]
  - HIP FRACTURE [None]
  - INJECTION SITE ERYTHEMA [None]
  - INJECTION SITE HAEMORRHAGE [None]
  - INJECTION SITE NODULE [None]
  - INJECTION SITE PAIN [None]
  - INJECTION SITE ULCER [None]
  - INJECTION SITE URTICARIA [None]
  - MYOCARDIAL INFARCTION [None]
  - NASOPHARYNGITIS [None]
  - PHARMACEUTICAL PRODUCT COMPLAINT [None]
  - POOR PERIPHERAL CIRCULATION [None]
  - RETINOPATHY [None]
  - SKIN ULCER [None]
  - WRONG TECHNIQUE IN DRUG USAGE PROCESS [None]
